FAERS Safety Report 24902106 (Version 1)
Quarter: 2025Q1

REPORT INFORMATION
  Report Type: Other
  Country: DE (occurrence: DE)
  Receive Date: 20250129
  Receipt Date: 20250129
  Transmission Date: 20250409
  Serious: Yes (Other)
  Sender: WAYLIS THERAPEUTICS LLC
  Company Number: DE-WT-2025-39418614P5

PATIENT
  Age: 17 Year
  Sex: Female

DRUGS (11)
  1. BUSULFAN [Suspect]
     Active Substance: BUSULFAN
     Route: 042
  2. ZYNTEGLO [Concomitant]
     Active Substance: BETIBEGLOGENE AUTOTEMCEL
     Route: 042
  3. DEFERIPRONE [Concomitant]
     Active Substance: DEFERIPRONE
     Route: 065
  4. CLONAZEPAM [Concomitant]
     Active Substance: CLONAZEPAM
     Route: 065
  5. HEPARIN [Concomitant]
     Active Substance: HEPARIN SODIUM
     Route: 065
  6. URSODIOL [Concomitant]
     Active Substance: URSODIOL
     Route: 065
  7. AMPHOTERICIN B [Concomitant]
     Active Substance: AMPHOTERICIN B
     Route: 065
  8. ACYCLOVIR [Concomitant]
     Active Substance: ACYCLOVIR
     Route: 065
  9. FLUCONAZOLE [Concomitant]
     Active Substance: FLUCONAZOLE
     Route: 065
  10. COTRIMOXAZOLE [Concomitant]
     Active Substance: SULFAMETHOXAZOLE\TRIMETHOPRIM
     Route: 065
  11. URSODIOL [Concomitant]
     Active Substance: URSODIOL
     Route: 065

REACTIONS (3)
  - Primary hypogonadism [Unknown]
  - Pituitary amenorrhoea [Unknown]
  - Thrombocytopenia [Not Recovered/Not Resolved]
